FAERS Safety Report 9585702 (Version 1)
Quarter: 2013Q4

REPORT INFORMATION
  Report Type: Spontaneous
  Country: FR (occurrence: FR)
  Receive Date: 20131003
  Receipt Date: 20131003
  Transmission Date: 20140711
  Serious: Yes (Hospitalization)
  Sender: FDA-Public Use
  Company Number: FR-ROCHE-1283117

PATIENT
  Age: 54 Year
  Sex: Female

DRUGS (2)
  1. ZELBORAF [Suspect]
     Indication: MALIGNANT MELANOMA
     Route: 048
     Dates: start: 20120914, end: 20120926
  2. IMUREL [Concomitant]
     Indication: DERMATOMYOSITIS
     Route: 065
     Dates: start: 201006, end: 20120926

REACTIONS (2)
  - Rash morbilliform [Recovered/Resolved]
  - Oedema [Recovered/Resolved]
